FAERS Safety Report 11595606 (Version 1)
Quarter: 2015Q4

REPORT INFORMATION
  Report Type: Spontaneous
  Country: CO (occurrence: None)
  Receive Date: 20151002
  Receipt Date: 20151002
  Transmission Date: 20160304
  Serious: No
  Sender: FDA-Public Use
  Company Number: CO-2015-3923

PATIENT
  Sex: Female

DRUGS (16)
  1. TYLEX (CODEINE PHOSPHATE, PARACETAMOL) [Concomitant]
     Active Substance: ACETAMINOPHEN\CODEINE PHOSPHATE
  2. TRILEPTAL [Concomitant]
     Active Substance: OXCARBAZEPINE
  3. NAVELBINE [Suspect]
     Active Substance: VINORELBINE TARTRATE
     Indication: BREAST CANCER
     Dosage: 94.4 MG, CYCLICAL (1/21), (47.4 MG ON DAY 0 AND 47 MG ON DAY 8)
     Route: 042
     Dates: start: 20041009
  4. VENALOT [Concomitant]
     Active Substance: COUMARIN\TROXERUTIN
  5. ACETAMINOPHEN (PARACETAMOL) [Concomitant]
     Active Substance: ACETAMINOPHEN
  6. TEGRETOL [Concomitant]
     Active Substance: CARBAMAZEPINE
  7. OMEPRAZOL (OMEPRAZOLE MAGNESIUM) [Concomitant]
     Active Substance: OMEPRAZOLE MAGNESIUM
  8. RANITIDINA (RANITIDINE HYDROCHLORIDE) [Concomitant]
     Active Substance: RANITIDINE HYDROCHLORIDE
  9. TRAMADOL. [Concomitant]
     Active Substance: TRAMADOL
  10. BUSCAPINA (HYOSCINE BUTYLBROMIDE) [Concomitant]
     Active Substance: BUTYLSCOPOLAMINE BROMIDE
  11. CIPROFLOXACIN (CIPROFLOXACIN LACTATE) [Concomitant]
     Active Substance: CIPROFLOXACIN LACTATE
  12. VOLTAREN (DICLOFENAC POTASSIUM) [Concomitant]
     Active Substance: DICLOFENAC POTASSIUM
  13. CARBAMAZEPIRES [Concomitant]
     Active Substance: CARBAMAZEPINE
  14. METICORTEN [Concomitant]
     Active Substance: PREDNISONE
  15. BACTRIM [Concomitant]
     Active Substance: SULFAMETHOXAZOLE\TRIMETHOPRIM
  16. FIRAC PLUS (CLONIXIN LYSINATE, PARGEVERINE HYDROCHLORIDE) [Concomitant]
     Active Substance: CLONIXIN\PARGEVERINE

REACTIONS (17)
  - Pruritus [None]
  - Disease progression [None]
  - Neutropenia [None]
  - Lymphopenia [None]
  - Leukopenia [None]
  - Constipation [None]
  - Vomiting [None]
  - Hypersensitivity [None]
  - Abdominal pain [None]
  - Hypoalbuminaemia [None]
  - Dyspnoea [None]
  - Haematotoxicity [None]
  - Haematuria [None]
  - Fatigue [None]
  - Nausea [None]
  - Thrombocytopenia [None]
  - Liver injury [None]
